FAERS Safety Report 13683903 (Version 1)
Quarter: 2017Q2

REPORT INFORMATION
  Report Type: Spontaneous
  Country: US (occurrence: US)
  Receive Date: 20170623
  Receipt Date: 20170623
  Transmission Date: 20170830
  Serious: No
  Sender: FDA-Public Use
  Company Number: US-PFIZER INC-2017273533

PATIENT
  Age: 28 Year
  Sex: Female
  Weight: 65.77 kg

DRUGS (2)
  1. SOMAVERT [Suspect]
     Active Substance: PEGVISOMANT
     Indication: ACROMEGALY
     Dosage: 10 MG, DAILY (INJECTION, ONCE A DAY)
     Route: 042
     Dates: start: 2017
  2. SIGNIFOR [Concomitant]
     Active Substance: PASIREOTIDE
     Indication: ACROMEGALY
     Dosage: 40MG, INJECTION, ONCE A MONTH

REACTIONS (2)
  - Injection site pain [Unknown]
  - Product quality issue [Unknown]

NARRATIVE: CASE EVENT DATE: 20170620
